FAERS Safety Report 9232332 (Version 1)
Quarter: 2013Q2

REPORT INFORMATION
  Report Type: Spontaneous
  Country: US (occurrence: US)
  Receive Date: 20130416
  Receipt Date: 20130422
  Transmission Date: 20140414
  Serious: Yes (Hospitalization)
  Sender: FDA-Public Use
  Company Number: US-009507513-1304USA004286

PATIENT
  Sex: Female

DRUGS (3)
  1. NASONEX [Suspect]
     Indication: ALLERGIC SINUSITIS
     Dosage: 50 MICROGRAM, OFF AND ON FOR LAST 2 TO 3 YEARS
     Route: 045
     Dates: start: 201004
  2. AFLURIA [Suspect]
     Indication: PROPHYLAXIS
     Dates: start: 2012, end: 2012
  3. PNEUMOVAX23 [Suspect]
     Indication: PROPHYLAXIS

REACTIONS (10)
  - Influenza [Unknown]
  - Ocular hyperaemia [Unknown]
  - Headache [Unknown]
  - Eye disorder [Unknown]
  - Incorrect dose administered [Unknown]
  - Drug ineffective [Unknown]
  - Adverse event [Unknown]
  - Pneumonia [Unknown]
  - Pneumonia [Unknown]
  - Pneumonia [Unknown]
